FAERS Safety Report 18382285 (Version 1)
Quarter: 2020Q4

REPORT INFORMATION
  Report Type: Spontaneous
  Country: US (occurrence: US)
  Receive Date: 20201013
  Receipt Date: 20201013
  Transmission Date: 20210114
  Serious: Yes (Other)
  Sender: FDA-Public Use
  Company Number: None

PATIENT
  Age: 62 Year
  Sex: Male
  Weight: 138.35 kg

DRUGS (1)
  1. METFORMIN SA [Suspect]
     Active Substance: METFORMIN HYDROCHLORIDE
     Route: 048
     Dates: start: 20200316, end: 20200616

REACTIONS (2)
  - Recalled product administered [None]
  - Bladder cancer [None]

NARRATIVE: CASE EVENT DATE: 20200316
